FAERS Safety Report 13796479 (Version 1)
Quarter: 2017Q3

REPORT INFORMATION
  Report Type: Spontaneous
  Country: US (occurrence: US)
  Receive Date: 20170726
  Receipt Date: 20170726
  Transmission Date: 20171127
  Serious: No
  Sender: FDA-Public Use
  Company Number: US-AMGEN-USASP2017048209

PATIENT
  Sex: Female

DRUGS (1)
  1. KYPROLIS [Suspect]
     Active Substance: CARFILZOMIB
     Indication: PLASMA CELL MYELOMA
     Dosage: 27 MG/M2, UNK
     Route: 042

REACTIONS (4)
  - Infusion site erythema [Unknown]
  - Infusion site discolouration [Unknown]
  - Platelet count abnormal [Unknown]
  - Infusion site rash [Unknown]

NARRATIVE: CASE EVENT DATE: 20170324
